FAERS Safety Report 8318954-X (Version None)
Quarter: 2012Q2

REPORT INFORMATION
  Report Type: 
  Country: None (occurrence: None)
  Receive Date: 20120427
  Receipt Date: 20120420
  Transmission Date: 20120825
  Serious: Yes (Hospitalization)
  Sender: FDA-Public Use
  Company Number: US-AMGEN-USASP2012025263

PATIENT
  Age: 61 Year
  Sex: Female

DRUGS (1)
  1. ENBREL [Suspect]
     Indication: RHEUMATOID ARTHRITIS
     Dosage: 50 MG, QWK
     Dates: start: 20090402

REACTIONS (7)
  - GAIT DISTURBANCE [None]
  - PAIN IN EXTREMITY [None]
  - URINARY TRACT INFECTION [None]
  - OEDEMA PERIPHERAL [None]
  - KNEE OPERATION [None]
  - ARTHROPATHY [None]
  - PAIN [None]
